FAERS Safety Report 21755623 (Version 1)
Quarter: 2022Q4

REPORT INFORMATION
  Report Type: Spontaneous
  Country: US (occurrence: US)
  Receive Date: 20221220
  Receipt Date: 20221220
  Transmission Date: 20230112
  Serious: No
  Sender: FDA-Public Use
  Company Number: US-SA-SAC20221219001337

PATIENT
  Age: 9 Year
  Sex: Female

DRUGS (1)
  1. DUPIXENT [Suspect]
     Active Substance: DUPILUMAB
     Dosage: 1 ML FREQUENCY: OTHER
     Route: 058

REACTIONS (3)
  - Injection site erythema [Unknown]
  - Injection site pain [Unknown]
  - Lack of injection site rotation [Unknown]
